FAERS Safety Report 12518045 (Version 2)
Quarter: 2016Q3

REPORT INFORMATION
  Report Type: Report from Study
  Country: BR (occurrence: BR)
  Receive Date: 20160630
  Receipt Date: 20160822
  Transmission Date: 20161109
  Serious: Yes (Other)
  Sender: FDA-Public Use
  Company Number: BR-JNJFOC-20160316903

PATIENT
  Age: 58 Year
  Sex: Female

DRUGS (1)
  1. SIMPONI [Suspect]
     Active Substance: GOLIMUMAB
     Indication: RHEUMATOID ARTHRITIS
     Route: 058
     Dates: start: 20151125

REACTIONS (4)
  - Bacterial infection [Unknown]
  - Arthralgia [Unknown]
  - Drug ineffective [Unknown]
  - Osteitis [Unknown]

NARRATIVE: CASE EVENT DATE: 201603
